FAERS Safety Report 17334532 (Version 1)
Quarter: 2020Q1

REPORT INFORMATION
  Report Type: Spontaneous
  Country: US (occurrence: US)
  Receive Date: 20200128
  Receipt Date: 20200128
  Transmission Date: 20200409
  Serious: No
  Sender: FDA-Public Use
  Company Number: US-PARATEK PHARMACEUTICALS, INC.-2019PTK00135

PATIENT
  Age: 33 Year
  Sex: Female

DRUGS (3)
  1. NUZYRA [Suspect]
     Active Substance: OMADACYCLINE
     Dosage: 150 MG, 1X/DAY IN THE EVENING
     Route: 048
     Dates: start: 20191125, end: 20191125
  2. NUZYRA [Suspect]
     Active Substance: OMADACYCLINE
     Dosage: 300 MG, 1X/DAY IN THE MORNING
     Route: 048
     Dates: start: 20191125, end: 20191125
  3. NUZYRA [Suspect]
     Active Substance: OMADACYCLINE
     Indication: VAGINAL INFECTION
     Dosage: 300 MG, 2X/DAY
     Route: 048
     Dates: start: 20191124, end: 20191124

REACTIONS (5)
  - Dysuria [Not Recovered/Not Resolved]
  - Off label use [Not Recovered/Not Resolved]
  - Fatigue [Not Recovered/Not Resolved]
  - Drug dose titration not performed [Not Recovered/Not Resolved]
  - Incorrect dose administered [Recovered/Resolved]

NARRATIVE: CASE EVENT DATE: 201911
